FAERS Safety Report 15355649 (Version 1)
Quarter: 2018Q3

REPORT INFORMATION
  Report Type: Spontaneous
  Country: US (occurrence: US)
  Receive Date: 20180830
  Receipt Date: 20180830
  Transmission Date: 20181010
  Serious: Yes (Other)
  Sender: FDA-Public Use
  Company Number: None

PATIENT
  Age: 74 Year
  Sex: Female
  Weight: 94.5 kg

DRUGS (13)
  1. RANITIDINE. [Concomitant]
     Active Substance: RANITIDINE
  2. FERROUS SULFATE. [Concomitant]
     Active Substance: FERROUS SULFATE
  3. MELOXICAM. [Concomitant]
     Active Substance: MELOXICAM
  4. DOCUSATE [Concomitant]
     Active Substance: DOCUSATE
  5. IMATINIB [Suspect]
     Active Substance: IMATINIB
     Indication: GASTROINTESTINAL STROMAL TUMOUR
     Route: 048
     Dates: start: 20180806
  6. AMBIEN [Concomitant]
     Active Substance: ZOLPIDEM TARTRATE
  7. HCTZ [Concomitant]
     Active Substance: HYDROCHLOROTHIAZIDE
  8. METFORMIN [Concomitant]
     Active Substance: METFORMIN HYDROCHLORIDE
  9. AMLODIPINE [Concomitant]
     Active Substance: AMLODIPINE BESYLATE
  10. GABAPENTIN. [Concomitant]
     Active Substance: GABAPENTIN
  11. METAMUCIL [Concomitant]
     Active Substance: PLANTAGO SEED
  12. ASPIRIN. [Concomitant]
     Active Substance: ASPIRIN
  13. SENNA [Concomitant]
     Active Substance: SENNA LEAF\SENNOSIDES\SENNOSIDES A AND B

REACTIONS (1)
  - Constipation [None]
